FAERS Safety Report 9375195 (Version 2)
Quarter: 2013Q3

REPORT INFORMATION
  Report Type: Spontaneous
  Country: MT (occurrence: MT)
  Receive Date: 20130628
  Receipt Date: 20130925
  Transmission Date: 20140515
  Serious: Yes (Other)
  Sender: FDA-Public Use
  Company Number: MT-JNJFOC-20130615359

PATIENT
  Sex: Male
  Weight: 60 kg

DRUGS (3)
  1. REGAINE EXTRA STRENGTH FOR MEN TOPICAL SOLUTION 5% [Suspect]
     Route: 061
  2. REGAINE EXTRA STRENGTH FOR MEN TOPICAL SOLUTION 5% [Suspect]
     Indication: ANDROGENETIC ALOPECIA
     Dosage: ONE DOSE
     Route: 061
     Dates: start: 20121201, end: 201306
  3. CYSTINE B6 [Concomitant]
     Indication: ANDROGENETIC ALOPECIA
     Route: 061

REACTIONS (7)
  - Local swelling [Recovered/Resolved]
  - Skin exfoliation [Recovered/Resolved]
  - Application site oedema [Recovered/Resolved]
  - Erythema [Recovered/Resolved]
  - Pruritus [Recovered/Resolved]
  - Swelling face [Recovered/Resolved]
  - Inappropriate schedule of drug administration [Unknown]
